FAERS Safety Report 4299839-5 (Version None)
Quarter: 2004Q1

REPORT INFORMATION
  Report Type: 
  Country: None (occurrence: None)
  Receive Date: 20040126
  Receipt Date: 20031215
  Transmission Date: 20041129
  Serious: No
  Sender: FDA-Public Use
  Company Number: USA031152895

PATIENT
  Age: 55 Year
  Sex: Female
  Weight: 57 kg

DRUGS (4)
  1. STRATTERA [Suspect]
     Indication: ATTENTION DEFICIT/HYPERACTIVITY DISORDER
     Dosage: 80 MG/1 DAY
     Dates: start: 20030923
  2. PREMARIN [Concomitant]
  3. CLARITIN [Concomitant]
  4. ACYCLOVIR [Concomitant]

REACTIONS (3)
  - FLUSHING [None]
  - HYPERHIDROSIS [None]
  - HYPERTHERMIA [None]
